FAERS Safety Report 11417139 (Version 1)
Quarter: 2015Q3

REPORT INFORMATION
  Report Type: Spontaneous
  Country: US (occurrence: US)
  Receive Date: 20150825
  Receipt Date: 20150825
  Transmission Date: 20151125
  Serious: No
  Sender: FDA-Public Use
  Company Number: US-MYLANLABS-2015M1015850

PATIENT
  Age: 77 Year
  Sex: Male

DRUGS (1)
  1. PENTOXIFYLLINE EXTENDED-RELEASE TABLETS, USP [Suspect]
     Active Substance: PENTOXIFYLLINE
     Indication: BLOOD VISCOSITY DECREASED
     Dosage: 800 MG, QD
     Route: 048
     Dates: start: 20150501

REACTIONS (3)
  - Nausea [Not Recovered/Not Resolved]
  - Dizziness [Not Recovered/Not Resolved]
  - Reaction to drug excipients [Not Recovered/Not Resolved]

NARRATIVE: CASE EVENT DATE: 20150502
